FAERS Safety Report 7003429-0 (Version None)
Quarter: 2010Q3

REPORT INFORMATION
  Report Type: 
  Country: None (occurrence: None)
  Receive Date: 20100920
  Receipt Date: 20100910
  Transmission Date: 20110219
  Serious: Yes (Disabling, Other)
  Sender: FDA-Public Use
  Company Number: US-PFIZER INC-2010082998

PATIENT
  Sex: Male

DRUGS (9)
  1. CHANTIX [Suspect]
     Indication: SMOKING CESSATION THERAPY
     Dosage: UNK
     Dates: start: 20080301, end: 20080801
  2. CHANTIX [Suspect]
     Dosage: UNK
     Dates: start: 20090601, end: 20090801
  3. LORATADINE [Concomitant]
     Indication: HYPERSENSITIVITY
     Dosage: UNK
     Dates: start: 19840101
  4. AMLODIPINE [Concomitant]
     Indication: BLOOD PRESSURE
     Dosage: UNK
     Dates: start: 19980101
  5. METHADONE [Concomitant]
     Indication: BACK PAIN
     Dosage: UNK
     Dates: start: 19980101
  6. ACETAMINOPHEN AND HYDROCODONE BITARTRATE [Concomitant]
     Indication: BACK PAIN
     Dosage: UNK
     Dates: start: 19980101
  7. GLYBURIDE [Concomitant]
     Indication: DIABETES MELLITUS
     Dosage: UNK
  8. TAMSULOSIN [Concomitant]
     Indication: PROSTATE CANCER
     Dosage: UNK
  9. LYRICA [Concomitant]
     Indication: PAIN
     Dosage: UNK
     Dates: start: 20070101

REACTIONS (6)
  - ANGER [None]
  - ANXIETY [None]
  - DEPRESSION [None]
  - IRRITABILITY [None]
  - LOSS OF CONSCIOUSNESS [None]
  - SUICIDE ATTEMPT [None]
